FAERS Safety Report 10537819 (Version 1)
Quarter: 2014Q4

REPORT INFORMATION
  Report Type: Spontaneous
  Country: TR (occurrence: None)
  Receive Date: 20141021
  Receipt Date: 20141021
  Transmission Date: 20150529
  Serious: Yes (Other)
  Sender: FDA-Public Use
  Company Number: FK201404105

PATIENT
  Age: 15 Year
  Sex: Male

DRUGS (1)
  1. CEFTRIAXON (MANUFACTURER UNKNOWN) (CEFTRIAXON-DINATRIUM) (CEFTRIAXON-DINATRIUM) [Suspect]
     Active Substance: CEFTRIAXONE
     Indication: SICKLE CELL ANAEMIA WITH CRISIS

REACTIONS (1)
  - Acute generalised exanthematous pustulosis [None]
